FAERS Safety Report 4997446-X (Version None)
Quarter: 2006Q2

REPORT INFORMATION
  Report Type: 
  Country: None (occurrence: None)
  Receive Date: 20060509
  Receipt Date: 20050706
  Transmission Date: 20061013
  Serious: Yes (Death)
  Sender: FDA-Public Use
  Company Number: US-MERCK-0507USA00962

PATIENT
  Age: 38 Year
  Sex: Male
  Weight: 129 kg

DRUGS (13)
  1. VIOXX [Suspect]
     Indication: ARTHRITIS
     Route: 048
     Dates: start: 20030201, end: 20030801
  2. BEXTRA [Concomitant]
     Route: 065
  3. CELEBREX [Concomitant]
     Route: 065
  4. POTASSIUM (UNSPECIFIED) [Concomitant]
     Route: 065
  5. METFORMIN HYDROCHLORIDE [Concomitant]
     Route: 065
  6. DIGITEK [Concomitant]
     Route: 065
  7. LASIX [Concomitant]
     Route: 065
  8. PROTONIX [Concomitant]
     Route: 065
  9. ACTOS [Concomitant]
     Route: 065
  10. LIPITOR [Concomitant]
     Route: 065
  11. [THERAPY UNSPECIFIED] [Concomitant]
     Route: 065
  12. MONOPRIL [Concomitant]
     Route: 065
  13. CARDIZEM [Concomitant]
     Route: 065

REACTIONS (3)
  - COUGH [None]
  - PULMONARY EMBOLISM [None]
  - RENAL CELL CARCINOMA STAGE UNSPECIFIED [None]
